FAERS Safety Report 5801504-7 (Version None)
Quarter: 2008Q3

REPORT INFORMATION
  Report Type: 
  Country: None (occurrence: None)
  Receive Date: 20080707
  Receipt Date: 20080701
  Transmission Date: 20090109
  Serious: Yes (Hospitalization)
  Sender: FDA-Public Use
  Company Number: US-ROCHE-573624

PATIENT
  Sex: Female

DRUGS (5)
  1. PEG-INTERFERON A-2A (RO 25-8310) [Suspect]
     Dosage: PRE-FILLED SYRINGE
     Route: 065
     Dates: start: 20070928
  2. RIBAVIRIN [Suspect]
     Route: 065
     Dates: start: 20070928, end: 20080307
  3. RIBAVIRIN [Suspect]
     Route: 065
     Dates: start: 20080307
  4. DIOVAN [Concomitant]
     Indication: HYPERTENSION
  5. DIOVAN [Concomitant]
     Dosage: DOSE DECREASED SINCE HOSPITALIZATION

REACTIONS (1)
  - ORTHOSTATIC HYPOTENSION [None]
